FAERS Safety Report 11673056 (Version 2)
Quarter: 2015Q4

REPORT INFORMATION
  Report Type: Spontaneous
  Country: FR (occurrence: FR)
  Receive Date: 20151028
  Receipt Date: 20151204
  Transmission Date: 20160304
  Serious: Yes (Hospitalization, Other)
  Sender: FDA-Public Use
  Company Number: FR-AUROBINDO-AUR-APL-2015-09629

PATIENT
  Age: 41 Year
  Sex: Female

DRUGS (2)
  1. BISOPROLOL 2.5 MG TABLET [Suspect]
     Active Substance: BISOPROLOL
     Dosage: 3 DF, DAILY
     Route: 048
     Dates: start: 20151016, end: 20151016
  2. BISOPROLOL 2.5 MG TABLET [Suspect]
     Active Substance: BISOPROLOL
     Indication: CARDIAC FAILURE
     Dosage: 1 DF, DAILY
     Route: 048

REACTIONS (3)
  - Heart rate increased [Recovered/Resolved]
  - Intentional overdose [Recovered/Resolved]
  - Suicidal behaviour [Recovered/Resolved]

NARRATIVE: CASE EVENT DATE: 20151016
